FAERS Safety Report 11320907 (Version 1)
Quarter: 2015Q3

REPORT INFORMATION
  Report Type: Spontaneous
  Country: US (occurrence: US)
  Receive Date: 20150729
  Receipt Date: 20150729
  Transmission Date: 20151125
  Serious: No
  Sender: FDA-Public Use
  Company Number: US-ENDO PHARMACEUTICALS INC.-HYDR20140023

PATIENT
  Sex: Female
  Weight: 71.28 kg

DRUGS (16)
  1. HYDROCORTISONE TABLETS [Suspect]
     Active Substance: HYDROCORTISONE
     Indication: PAIN
     Dosage: ^FOUR PILLS^
     Route: 048
  2. HYDROCODONE BITARTRATE AND ACETAMINOPHEN [Concomitant]
     Active Substance: ACETAMINOPHEN\HYDROCODONE BITARTRATE
     Indication: MULTIPLE FRACTURES
     Dosage: 30MG/1300MG
     Route: 048
     Dates: start: 2012
  3. HYDROCODONE BITARTRATE AND ACETAMINOPHEN [Concomitant]
     Active Substance: ACETAMINOPHEN\HYDROCODONE BITARTRATE
     Indication: PAIN
     Dosage: 30MG/1300MG
     Route: 048
     Dates: start: 201408, end: 20141031
  4. IBUPROFEN TABLETS 200MG [Concomitant]
     Indication: PAIN IN EXTREMITY
     Route: 048
  5. PREDNISONE TABLETS [Concomitant]
     Active Substance: PREDNISONE
     Indication: RHEUMATOID ARTHRITIS
     Dosage: UNKNOWN
     Route: 048
  6. TYLENOL [Concomitant]
     Active Substance: ACETAMINOPHEN
     Indication: PAIN IN EXTREMITY
     Dosage: UNKNOWN
     Route: 048
  7. IBUPROFEN TABLETS 200MG [Concomitant]
     Indication: PERIPHERAL SWELLING
  8. AMITRIPTYLINE HCL 10MG [Concomitant]
     Active Substance: AMITRIPTYLINE
     Indication: PRODUCT USED FOR UNKNOWN INDICATION
     Route: 048
     Dates: start: 20141028, end: 20141102
  9. TYLENOL [Concomitant]
     Active Substance: ACETAMINOPHEN
     Indication: HYPOAESTHESIA
  10. AMITRIPTYLINE HCL 10MG [Concomitant]
     Active Substance: AMITRIPTYLINE
     Route: 048
     Dates: start: 20141103
  11. CORTISONE [Concomitant]
     Active Substance: CORTISONE\HYDROCORTISONE
     Indication: RHEUMATOID ARTHRITIS
     Dosage: ONE TREATMENT
     Route: 042
     Dates: start: 201408, end: 201408
  12. IBUPROFEN TABLETS 200MG [Concomitant]
     Indication: HYPOAESTHESIA
  13. CORTISONE [Concomitant]
     Active Substance: CORTISONE\HYDROCORTISONE
     Indication: HYPOAESTHESIA
  14. CORTISONE [Concomitant]
     Active Substance: CORTISONE\HYDROCORTISONE
     Indication: PAIN IN EXTREMITY
     Dosage: ONE TREATMENT
     Route: 042
     Dates: start: 201410, end: 201410
  15. CORTISONE [Concomitant]
     Active Substance: CORTISONE\HYDROCORTISONE
     Indication: PERIPHERAL SWELLING
  16. TYLENOL [Concomitant]
     Active Substance: ACETAMINOPHEN
     Indication: PERIPHERAL SWELLING

REACTIONS (1)
  - Drug ineffective [Not Recovered/Not Resolved]

NARRATIVE: CASE EVENT DATE: 2014
